FAERS Safety Report 5794218-3 (Version None)
Quarter: 2008Q2

REPORT INFORMATION
  Report Type: 
  Country: None (occurrence: None)
  Receive Date: 20080625
  Receipt Date: 20080613
  Transmission Date: 20081010
  Serious: Yes (Death)
  Sender: FDA-Public Use
  Company Number: 235421J08USA

PATIENT
  Age: 39 Year
  Sex: Female
  Weight: 52.1637 kg

DRUGS (8)
  1. REBIF [Suspect]
     Indication: MULTIPLE SCLEROSIS
     Dosage: 44 MCG, 3 IN 2 WEEKS, SUBCUTANEOUS
     Route: 058
     Dates: start: 20061109, end: 20071109
  2. CYTOXAN [Suspect]
     Indication: MULTIPLE SCLEROSIS
     Dosage: 1 IN 4 WEEKS, INTRAVENOUS (NOT OTHERWISE SPECIFIED)
     Route: 042
     Dates: start: 20070701
  3. ZANAFLEX [Concomitant]
  4. KEPPRA [Concomitant]
  5. ROBAXIN [Concomitant]
  6. SANCTURA (TROSPIUM) [Concomitant]
  7. LEXAPRO [Concomitant]
  8. NEURONTIN [Concomitant]

REACTIONS (2)
  - HYPOTENSION [None]
  - MYOCARDIAL INFARCTION [None]
